FAERS Safety Report 19837382 (Version 1)
Quarter: 2021Q3

REPORT INFORMATION
  Report Type: Report from Study
  Country: None (occurrence: US)
  Receive Date: 20210916
  Receipt Date: 20210916
  Transmission Date: 20211014
  Serious: Yes (Death, Hospitalization)
  Sender: FDA-Public Use
  Company Number: US-ABBVIE-21K-163-4021856-00

PATIENT
  Age: 72 Year
  Sex: Female
  Weight: 83.08 kg

DRUGS (4)
  1. VENCLEXTA [Suspect]
     Active Substance: VENETOCLAX
     Indication: ACUTE MYELOID LEUKAEMIA
     Route: 048
     Dates: start: 2021, end: 20210819
  2. MODERNA COVID?19 VACCINE [Concomitant]
     Active Substance: CX-024414
     Indication: COVID-19 IMMUNISATION
     Route: 030
     Dates: start: 20210204, end: 20210204
  3. MODERNA COVID?19 VACCINE [Concomitant]
     Active Substance: CX-024414
     Route: 030
     Dates: start: 20210305, end: 20210305
  4. VENCLEXTA [Suspect]
     Active Substance: VENETOCLAX
     Indication: ACUTE MYELOMONOCYTIC LEUKAEMIA
     Route: 048
     Dates: start: 202107, end: 2021

REACTIONS (9)
  - Pneumonia [Recovered/Resolved]
  - Drug ineffective [Recovered/Resolved]
  - Asthenia [Fatal]
  - Nausea [Fatal]
  - Acute myeloid leukaemia [Fatal]
  - Therapeutic product effect decreased [Fatal]
  - White blood cell count increased [Fatal]
  - Cough [Recovered/Resolved]
  - Off label use [Recovered/Resolved]

NARRATIVE: CASE EVENT DATE: 2021
